FAERS Safety Report 17308223 (Version 1)
Quarter: 2020Q1

REPORT INFORMATION
  Report Type: Spontaneous
  Country: US (occurrence: US)
  Receive Date: 20200106
  Receipt Date: 20200106
  Transmission Date: 20200409
  Serious: Yes (Life-Threatening, Hospitalization)
  Sender: FDA-Public Use
  Company Number: None

PATIENT
  Age: 48 Year
  Sex: Male

DRUGS (1)
  1. SULFAMETHOXAZOLE/TRIMETHOPRIM (SULFAMETHOXAZOLE800MG/TRIMETHOPRIME 160 [Suspect]
     Active Substance: SULFAMETHOXAZOLE\TRIMETHOPRIM
     Indication: INFECTION
     Dosage: ?          OTHER DOSE:1 TAB;?
     Route: 048
     Dates: start: 20190817, end: 20191023

REACTIONS (5)
  - Hepatomegaly [None]
  - Pancreatic atrophy [None]
  - Faeces pale [None]
  - Hepatic steatosis [None]
  - Abdominal pain [None]

NARRATIVE: CASE EVENT DATE: 20190912
